FAERS Safety Report 6666867-1 (Version None)
Quarter: 2010Q2

REPORT INFORMATION
  Report Type: 
  Country: None (occurrence: None)
  Receive Date: 20100405
  Receipt Date: 20100329
  Transmission Date: 20101027
  Serious: Yes (Other)
  Sender: FDA-Public Use
  Company Number: DE-ALLERGAN-1004039US

PATIENT
  Age: 68 Year
  Sex: Male

DRUGS (10)
  1. BOTOX [Suspect]
     Indication: NERVOUS SYSTEM DISORDER
     Dosage: UNK
     Dates: start: 20100201, end: 20100201
  2. BISOPROLOL [Concomitant]
     Route: 048
  3. ASPIRIN [Concomitant]
     Route: 048
  4. KAPPRA [Concomitant]
     Route: 048
  5. PRAVASTATIN SODIUM [Concomitant]
     Route: 048
  6. ALLOPURINOL [Concomitant]
     Route: 048
  7. FUROSEMID [Concomitant]
     Route: 048
  8. FERROSANOL [Concomitant]
     Route: 048
  9. VITASPRINT [Concomitant]
     Route: 048
  10. KALINOR [Concomitant]
     Route: 048

REACTIONS (3)
  - ANAEMIA [None]
  - LEUKOPENIA [None]
  - THROMBOCYTOPENIA [None]
